FAERS Safety Report 9010736 (Version 3)
Quarter: 2014Q2

REPORT INFORMATION
  Report Type: Spontaneous
  Country: JP (occurrence: JP)
  Receive Date: 20130111
  Receipt Date: 20140429
  Transmission Date: 20141212
  Serious: Yes (Life-Threatening)
  Sender: FDA-Public Use
  Company Number: PHHY2013JP002233

PATIENT
  Age: 51 Year
  Sex: Female

DRUGS (12)
  1. NEORAL [Suspect]
     Indication: RENAL TRANSPLANT
     Route: 048
  2. PREDNISONE [Suspect]
     Indication: IMMUNOSUPPRESSION
     Dosage: 10 MG, PER DAY (FOR 5 YEARS)
  3. PREDNISONE [Suspect]
     Dosage: 5 MG, PER DAY
  4. PREDNISONE [Suspect]
     Dosage: 60 MG/DL, UNK
  5. PREDNISONE [Suspect]
     Dosage: 5 MG, PER DAY
  6. CELLCEPT [Suspect]
     Indication: RENAL TRANSPLANT
     Route: 048
  7. IMMUNOGLOBULIN I.V [Suspect]
     Indication: TRANSPLANT REJECTION
     Dosage: 500 MG/KG, FOR 5 DAYS
     Route: 042
  8. MIZORIBINE [Suspect]
     Dosage: 100 MG, PER DAY
  9. SIMULECT [Concomitant]
     Indication: RENAL TRANSPLANT
     Dosage: 40 MG, BID
     Route: 042
  10. SIMULECT [Concomitant]
     Indication: IMMUNOSUPPRESSION
  11. PREDNISOLONE [Concomitant]
     Indication: RENAL TRANSPLANT
     Dosage: 5 MG
  12. PLASMAPHERESIS [Concomitant]
     Indication: TRANSPLANT REJECTION

REACTIONS (8)
  - Progressive multifocal leukoencephalopathy [Recovering/Resolving]
  - JC virus infection [Recovering/Resolving]
  - Hypoaesthesia [Recovering/Resolving]
  - Muscular weakness [Recovering/Resolving]
  - Dyskinesia [Recovering/Resolving]
  - Asthenia [Recovered/Resolved]
  - Renal impairment [Unknown]
  - Blood creatinine increased [Recovered/Resolved]
